FAERS Safety Report 5337856-4 (Version None)
Quarter: 2007Q2

REPORT INFORMATION
  Report Type: 
  Country: None (occurrence: None)
  Receive Date: 20070314
  Receipt Date: 20070112
  Transmission Date: 20071010
  Serious: Yes (Other)
  Sender: FDA-Public Use
  Company Number: 2006126681

PATIENT
  Age: 54 Year
  Sex: Female
  Weight: 77.1115 kg

DRUGS (1)
  1. ERAXIS [Suspect]
     Dosage: 200 MG (200 MG, 1 IN 24 HR), INTRAVENOUS
     Route: 042

REACTIONS (1)
  - INJECTION SITE REACTION [None]
